FAERS Safety Report 13007042 (Version 3)
Quarter: 2017Q1

REPORT INFORMATION
  Report Type: Report from Study
  Country: DE (occurrence: DE)
  Receive Date: 20161207
  Receipt Date: 20170131
  Transmission Date: 20170428
  Serious: Yes (Hospitalization)
  Sender: FDA-Public Use
  Company Number: DE-EISAI MEDICAL RESEARCH-E7080-01165-CLI-DE

PATIENT
  Age: 61 Year
  Sex: Male
  Weight: 105 kg

DRUGS (29)
  1. PANTOZOL [Concomitant]
     Active Substance: PANTOPRAZOLE SODIUM
  2. SIMVASTATIN. [Concomitant]
     Active Substance: SIMVASTATIN
  3. CALCIUM [Concomitant]
     Active Substance: CALCIUM
  4. LEVOTHYROXINE. [Concomitant]
     Active Substance: LEVOTHYROXINE
  5. RANEXA [Concomitant]
     Active Substance: RANOLAZINE
  6. DIPIPERON [Concomitant]
     Active Substance: PIPAMPERONE
  7. LENVATINIB [Suspect]
     Active Substance: LENVATINIB
     Dosage: PLACEBO
     Route: 048
     Dates: start: 20130319, end: 20140207
  8. LENVATINIB [Suspect]
     Active Substance: LENVATINIB
     Route: 048
     Dates: start: 20151121, end: 20161209
  9. BISOPROLOL [Concomitant]
     Active Substance: BISOPROLOL
  10. ROSUVASTATIN. [Concomitant]
     Active Substance: ROSUVASTATIN
  11. TINCTURA OPII [Concomitant]
  12. CALCITRIOL. [Concomitant]
     Active Substance: CALCITRIOL
  13. LENVATINIB [Suspect]
     Active Substance: LENVATINIB
     Indication: THYROID CANCER
     Dosage: PLACEBO
     Route: 048
     Dates: start: 20120904, end: 20130221
  14. RAMIPRIL. [Concomitant]
     Active Substance: RAMIPRIL
  15. LORAZEPAM. [Concomitant]
     Active Substance: LORAZEPAM
  16. TREVILOR RETARD [Concomitant]
     Active Substance: VENLAFAXINE HYDROCHLORIDE
  17. NITROLINGUAL [Concomitant]
     Active Substance: NITROGLYCERIN
  18. FRESUBIN ENERGY DRINK [Concomitant]
  19. DIAZEPAM. [Concomitant]
     Active Substance: DIAZEPAM
  20. LENVATINIB [Suspect]
     Active Substance: LENVATINIB
     Route: 048
     Dates: start: 20140521, end: 20140715
  21. LENVATINIB [Suspect]
     Active Substance: LENVATINIB
     Route: 048
     Dates: start: 20140813, end: 20141202
  22. LENVATINIB [Suspect]
     Active Substance: LENVATINIB
     Route: 048
     Dates: start: 20150812, end: 20151113
  23. MOCLOBEMID [Concomitant]
     Active Substance: MOCLOBEMIDE
  24. LOPERAMID [Concomitant]
     Active Substance: LOPERAMIDE
  25. LENVATINIB [Suspect]
     Active Substance: LENVATINIB
     Route: 048
     Dates: start: 20150127, end: 20150617
  26. ASPIRIN. [Concomitant]
     Active Substance: ASPIRIN
  27. GABAPENTIN. [Concomitant]
     Active Substance: GABAPENTIN
  28. MADOPAR [Concomitant]
     Active Substance: BENSERAZIDE HYDROCHLORIDE\LEVODOPA
  29. VENLAFAXIN [Concomitant]
     Active Substance: VENLAFAXINE HYDROCHLORIDE

REACTIONS (4)
  - Pain in extremity [Recovered/Resolved with Sequelae]
  - Pleural effusion [Not Recovered/Not Resolved]
  - Coronary artery occlusion [Recovered/Resolved]
  - Depression [Recovered/Resolved with Sequelae]

NARRATIVE: CASE EVENT DATE: 20130214
